FAERS Safety Report 7875884-5 (Version None)
Quarter: 2011Q4

REPORT INFORMATION
  Report Type: 
  Country: None (occurrence: None)
  Receive Date: 20111031
  Receipt Date: 20111017
  Transmission Date: 20120403
  Serious: Yes (Other)
  Sender: FDA-Public Use
  Company Number: PHHY2011BR92282

PATIENT
  Sex: Male

DRUGS (1)
  1. RITALIN LA [Suspect]
     Indication: AGITATION
     Dosage: 10 MG, DURING WEEKDAYS
     Dates: start: 20100801

REACTIONS (3)
  - AGITATION [None]
  - FIGHT IN SCHOOL [None]
  - VARICELLA [None]
